FAERS Safety Report 5123699-3 (Version None)
Quarter: 2006Q3

REPORT INFORMATION
  Report Type: 
  Country: None (occurrence: None)
  Receive Date: 20060811
  Receipt Date: 20060515
  Transmission Date: 20061208
  Serious: No
  Sender: FDA-Public Use
  Company Number: S06-USA-01840-01

PATIENT
  Age: 58 Year
  Sex: Male

DRUGS (7)
  1. NAMENDA [Suspect]
     Indication: MENTAL IMPAIRMENT
     Dosage: 5 MG BID PO
     Route: 048
     Dates: start: 20060501
  2. NAMENDA [Suspect]
     Indication: SPEECH DISORDER
     Dosage: 5 MG BID PO
     Route: 048
     Dates: start: 20060501
  3. NAMENDA [Suspect]
     Indication: MENTAL IMPAIRMENT
     Dosage: 5 MG QD PO
     Route: 048
     Dates: start: 20060501, end: 20060501
  4. NAMENDA [Suspect]
     Indication: SPEECH DISORDER
     Dosage: 5 MG QD PO
     Route: 048
     Dates: start: 20060501, end: 20060501
  5. SINEMET [Concomitant]
  6. MIRAPEX [Concomitant]
  7. WELLBUTRIN [Concomitant]

REACTIONS (1)
  - HYPERHIDROSIS [None]
